FAERS Safety Report 12381785 (Version 2)
Quarter: 2016Q2

REPORT INFORMATION
  Report Type: Report from Study
  Country: US (occurrence: US)
  Receive Date: 20160518
  Receipt Date: 20160609
  Transmission Date: 20160815
  Serious: Yes (Hospitalization)
  Sender: FDA-Public Use
  Company Number: US-ACTELION-A-US2015-121106

PATIENT
  Age: 73 Year
  Sex: Female

DRUGS (5)
  1. MACITENTAN [Suspect]
     Active Substance: MACITENTAN
     Indication: PULMONARY ARTERIAL HYPERTENSION
     Dosage: 10 MG, QD
     Route: 048
     Dates: start: 20150420
  2. MACITENTAN [Suspect]
     Active Substance: MACITENTAN
     Dosage: 10 MG, QD
     Route: 048
     Dates: start: 20160317
  3. LASIX [Suspect]
     Active Substance: FUROSEMIDE
     Indication: PRODUCT USED FOR UNKNOWN INDICATION
     Dosage: 80 MG, UNK
     Route: 042
  4. LASIX [Suspect]
     Active Substance: FUROSEMIDE
     Dosage: 120 MG, UNK
     Route: 042
  5. TYVASO [Suspect]
     Active Substance: TREPROSTINIL
     Indication: PRODUCT USED FOR UNKNOWN INDICATION
     Dosage: UNK
     Route: 065
     Dates: end: 20151216

REACTIONS (26)
  - Paraesthesia [Unknown]
  - Dyspnoea exertional [Recovered/Resolved]
  - Condition aggravated [Recovered/Resolved]
  - Oedema [Recovering/Resolving]
  - Restlessness [Unknown]
  - Dyspnoea [Unknown]
  - Blood creatinine increased [Recovered/Resolved]
  - Weight fluctuation [Unknown]
  - Fatigue [Not Recovered/Not Resolved]
  - Atrial tachycardia [Recovering/Resolving]
  - Fluid overload [Recovering/Resolving]
  - Chills [Unknown]
  - Malaise [Unknown]
  - Glomerular filtration rate decreased [Unknown]
  - Nervousness [Unknown]
  - Fluid retention [Recovered/Resolved]
  - Palpitations [Unknown]
  - Nausea [Unknown]
  - Cardiac failure [Unknown]
  - Asthenia [Not Recovered/Not Resolved]
  - Weight increased [Recovered/Resolved]
  - Swelling [Recovered/Resolved]
  - Muscle spasms [Recovered/Resolved]
  - Hyperkalaemia [Recovered/Resolved]
  - Renal impairment [Unknown]
  - Dizziness [Not Recovered/Not Resolved]

NARRATIVE: CASE EVENT DATE: 20150611
